FAERS Safety Report 19647339 (Version 1)
Quarter: 2021Q3

REPORT INFORMATION
  Report Type: Report from Study
  Country: HU (occurrence: HU)
  Receive Date: 20210802
  Receipt Date: 20210802
  Transmission Date: 20211014
  Serious: Yes (Death)
  Sender: FDA-Public Use
  Company Number: HU-PFIZER INC-202100940485

PATIENT
  Sex: Male

DRUGS (10)
  1. BETALOC ZOK [Suspect]
     Active Substance: METOPROLOL SUCCINATE
     Dosage: UNK
  2. TADUSTA [Suspect]
     Active Substance: DUTASTERIDE\TAMSULOSIN HYDROCHLORIDE
     Indication: BENIGN PROSTATIC HYPERPLASIA
     Dosage: 1 DF, 1X/DAY
     Route: 048
     Dates: start: 2021
  3. DOXAZOSIN MESILATE [Suspect]
     Active Substance: DOXAZOSIN MESYLATE
     Dosage: UNK
  4. SYNCUMAR [Suspect]
     Active Substance: ACENOCOUMAROL
     Dosage: UNK
  5. MILURIT [Suspect]
     Active Substance: ALLOPURINOL
     Dosage: UNK
  6. DORMICUM [MIDAZOLAM HYDROCHLORIDE] [Suspect]
     Active Substance: MIDAZOLAM HYDROCHLORIDE
     Dosage: UNK
  7. RAWEL SR [Suspect]
     Active Substance: INDAPAMIDE
     Dosage: UNK
  8. VALSARTAN. [Suspect]
     Active Substance: VALSARTAN
     Dosage: UNK
  9. ZOCOR [Suspect]
     Active Substance: SIMVASTATIN
     Dosage: UNK
  10. TRENTAL [Suspect]
     Active Substance: PENTOXIFYLLINE
     Dosage: UNK

REACTIONS (1)
  - Death [Fatal]

NARRATIVE: CASE EVENT DATE: 2021
